FAERS Safety Report 6556827-3 (Version None)
Quarter: 2010Q1

REPORT INFORMATION
  Report Type: 
  Country: None (occurrence: None)
  Receive Date: 20100128
  Receipt Date: 20100119
  Transmission Date: 20100710
  Serious: Yes (Other)
  Sender: FDA-Public Use
  Company Number: PHHY2009CA17703

PATIENT
  Sex: Female

DRUGS (5)
  1. SANDOSTATIN LAR [Suspect]
     Indication: ACROMEGALY
     Dosage: 10 MG EVERY 4 WEEKS
     Route: 030
     Dates: start: 19950101, end: 20100112
  2. ESTRADERM [Concomitant]
  3. CALCIUM D [Concomitant]
  4. PANTOPRAZOLE [Concomitant]
  5. MULTI-VITAMINS [Concomitant]

REACTIONS (9)
  - BLOOD CHOLESTEROL INCREASED [None]
  - BLOOD GLUCOSE INCREASED [None]
  - BLOOD INSULIN DECREASED [None]
  - DIABETES MELLITUS [None]
  - DIABETES MELLITUS INADEQUATE CONTROL [None]
  - FATIGUE [None]
  - INSOMNIA [None]
  - THIRST [None]
  - THYROID FUNCTION TEST ABNORMAL [None]
